FAERS Safety Report 10308325 (Version 1)
Quarter: 2014Q3

REPORT INFORMATION
  Report Type: Spontaneous
  Country: GB (occurrence: None)
  Receive Date: 20140714
  Receipt Date: 20140714
  Transmission Date: 20150326
  Serious: Yes (Other)
  Sender: FDA-Public Use
  Company Number: CL-573-2014

PATIENT
  Age: 54 Year
  Sex: Female
  Weight: 112 kg

DRUGS (5)
  1. BENFDROFLUMETHIAZIDE [Concomitant]
  2. NAPROXAN [Concomitant]
  3. ELLESTE-SOLO (ESTRDIOL, OESTRADIOL, ESTRADIOL HEMIHYDRATE) [Concomitant]
  4. FUROSEMIDE. [Suspect]
     Active Substance: FUROSEMIDE
     Indication: OEDEMA
     Route: 048
     Dates: start: 20140605, end: 20140620
  5. OMEPRAZOLE. [Concomitant]
     Active Substance: OMEPRAZOLE

REACTIONS (1)
  - Colitis [None]

NARRATIVE: CASE EVENT DATE: 20140609
